FAERS Safety Report 12250661 (Version 2)
Quarter: 2016Q2

REPORT INFORMATION
  Report Type: Other
  Country: PT (occurrence: PT)
  Receive Date: 20160409
  Receipt Date: 20160410
  Transmission Date: 20160815
  Serious: Yes (Hospitalization, Congenital Anomaly, Other)
  Sender: FDA-Public Use
  Company Number: PT-OSMOTICA_PHARMACEUTICAL_CORP-POI0573201600017

PATIENT
  Age: 1 Day
  Sex: Male
  Weight: 3.59 kg

DRUGS (4)
  1. ALPRAZOLAM. [Suspect]
     Active Substance: ALPRAZOLAM
     Indication: ANXIETY DISORDER
  2. VENLAFAXINE [Suspect]
     Active Substance: VENLAFAXINE HYDROCHLORIDE
     Indication: ANXIETY DISORDER
  3. VENLAFAXINE [Suspect]
     Active Substance: VENLAFAXINE HYDROCHLORIDE
     Indication: DEPRESSION
     Route: 064
  4. ALPRAZOLAM. [Suspect]
     Active Substance: ALPRAZOLAM
     Indication: DEPRESSION
     Route: 064

REACTIONS (4)
  - Poor feeding infant [Recovered/Resolved]
  - Neonatal respiratory distress syndrome [Recovered/Resolved]
  - Cardiomyopathy neonatal [Recovered/Resolved]
  - Neonatal hepatomegaly [Unknown]

NARRATIVE: CASE EVENT DATE: 2016
